FAERS Safety Report 4683708-2 (Version None)
Quarter: 2005Q2

REPORT INFORMATION
  Report Type: 
  Country: None (occurrence: None)
  Receive Date: 20050607
  Receipt Date: 20050525
  Transmission Date: 20051028
  Serious: Yes (Other)
  Sender: FDA-Public Use
  Company Number: US-KINGPHARMUSA00001-K200500702

PATIENT
  Age: 48 Year
  Sex: Female
  Weight: 70 kg

DRUGS (5)
  1. KETALAR [Suspect]
     Indication: ANAESTHESIA
     Dosage: 100 MG, SINGLE
     Route: 042
     Dates: start: 19950811, end: 19950811
  2. KETALAR [Suspect]
     Dosage: 50 MG, SINGLE
     Route: 042
     Dates: start: 19950811, end: 19950811
  3. VERSED [Concomitant]
     Indication: ANAESTHESIA
     Dates: start: 19950811, end: 19950811
  4. FENTANYL [Concomitant]
     Indication: ANAESTHESIA
     Dates: start: 19950811, end: 19950811
  5. OXYGEN [Concomitant]
     Dates: start: 19950811, end: 19950811

REACTIONS (17)
  - ABNORMAL DREAMS [None]
  - AUTOIMMUNE HEPATITIS [None]
  - COLLAPSE OF LUNG [None]
  - EPILEPSY [None]
  - HALLUCINATION, VISUAL [None]
  - JAUNDICE [None]
  - JOINT EFFUSION [None]
  - JOINT SWELLING [None]
  - MENTAL IMPAIRMENT [None]
  - MUSCLE SPASMS [None]
  - OBSTRUCTIVE AIRWAYS DISORDER [None]
  - PLEURAL EFFUSION [None]
  - PNEUMOTHORAX [None]
  - POST-TRAUMATIC STRESS DISORDER [None]
  - SEPSIS [None]
  - SKIN DISORDER [None]
  - SYSTEMIC LUPUS ERYTHEMATOSUS [None]
